FAERS Safety Report 16645490 (Version 1)
Quarter: 2019Q3

REPORT INFORMATION
  Report Type: Other
  Country: GB (occurrence: GB)
  Receive Date: 20190730
  Receipt Date: 20190730
  Transmission Date: 20191004
  Serious: Yes (Hospitalization, Disabling)
  Sender: FDA-Public Use
  Company Number: GB-CELLTRION INC.-2019GB023149

PATIENT

DRUGS (7)
  1. LISINOPRIL. [Concomitant]
     Active Substance: LISINOPRIL
  2. RIVAROXABAN [Concomitant]
     Active Substance: RIVAROXABAN
  3. LANSOPRAZOLE. [Concomitant]
     Active Substance: LANSOPRAZOLE
  4. VENTOLIN [Concomitant]
     Active Substance: ALBUTEROL SULFATE
  5. TRUXIMA [Suspect]
     Active Substance: RITUXIMAB-ABBS
     Indication: VASCULITIS
     Dosage: UNK (PHARMACEUTICAL DOSE FORM: 293)
     Route: 051
     Dates: start: 20181101
  6. FLIXOTIDE [Concomitant]
     Active Substance: FLUTICASONE PROPIONATE
  7. ERYTHROMYCIN. [Concomitant]
     Active Substance: ERYTHROMYCIN

REACTIONS (5)
  - Burning sensation [Not Recovered/Not Resolved]
  - Dry skin [Not Recovered/Not Resolved]
  - Arthralgia [Not Recovered/Not Resolved]
  - Skin exfoliation [Not Recovered/Not Resolved]
  - Product use in unapproved indication [Unknown]

NARRATIVE: CASE EVENT DATE: 20190521
